FAERS Safety Report 6326331-6 (Version None)
Quarter: 2009Q3

REPORT INFORMATION
  Report Type: 
  Country: None (occurrence: None)
  Receive Date: 20090819
  Receipt Date: 20090812
  Transmission Date: 20100115
  Serious: Yes (Other)
  Sender: FDA-Public Use
  Company Number: CHPA2009US16960

PATIENT
  Age: 62 Year
  Sex: Female
  Weight: 148.8 kg

DRUGS (5)
  1. EX-LAX MAX STR LAX PILLS SENNA (NCH)(SENNA GLYCOSIDES (CA SALTS OF PUR [Suspect]
     Indication: LAXATIVE SUPPORTIVE CARE
     Dosage: 375MG, AT ONCE, ONCE A WEEK, ORAL; 375MG, AT ONCE, TWICE A WEEK, ORAL
     Route: 048
     Dates: start: 19940101, end: 20090601
  2. EX-LAX MAX STR LAX PILLS SENNA (NCH)(SENNA GLYCOSIDES (CA SALTS OF PUR [Suspect]
     Indication: LAXATIVE SUPPORTIVE CARE
     Dosage: 375MG, AT ONCE, ONCE A WEEK, ORAL; 375MG, AT ONCE, TWICE A WEEK, ORAL
     Route: 048
     Dates: start: 20090601
  3. PREVACID [Concomitant]
  4. NORVASC [Concomitant]
  5. INSULIN (INSULIN) [Concomitant]

REACTIONS (10)
  - BACK PAIN [None]
  - CARDIAC FAILURE CONGESTIVE [None]
  - DARK CIRCLES UNDER EYES [None]
  - DIALYSIS [None]
  - DRUG DEPENDENCE [None]
  - FATIGUE [None]
  - FEELING HOT [None]
  - INTENTIONAL DRUG MISUSE [None]
  - OVERDOSE [None]
  - RENAL DISORDER [None]
